FAERS Safety Report 11421327 (Version 1)
Quarter: 2015Q3

REPORT INFORMATION
  Report Type: Spontaneous
  Country: US (occurrence: US)
  Receive Date: 20150826
  Receipt Date: 20150826
  Transmission Date: 20151125
  Serious: No
  Sender: FDA-Public Use
  Company Number: US-TAKEDA-2015TUS011166

PATIENT
  Sex: Male
  Weight: 81.63 kg

DRUGS (2)
  1. PREDNISONE. [Concomitant]
     Active Substance: PREDNISONE
     Indication: GOUT
     Dosage: UNK
     Route: 048
     Dates: start: 20150804, end: 20150814
  2. ULORIC [Suspect]
     Active Substance: FEBUXOSTAT
     Indication: GOUT
     Dosage: 40 MG, BID
     Route: 048
     Dates: start: 20150804

REACTIONS (1)
  - Gout [Unknown]

NARRATIVE: CASE EVENT DATE: 20150804
